FAERS Safety Report 16703703 (Version 3)
Quarter: 2020Q1

REPORT INFORMATION
  Report Type: Report from Study
  Country: US (occurrence: US)
  Receive Date: 20190814
  Receipt Date: 20200319
  Transmission Date: 20200409
  Serious: Yes (Other)
  Sender: FDA-Public Use
  Company Number: US-ROCHE-2374542

PATIENT
  Sex: Female
  Weight: 77.18 kg

DRUGS (8)
  1. GABAPENTIN. [Concomitant]
     Active Substance: GABAPENTIN
     Indication: NEUROPATHY PERIPHERAL
     Dosage: 3 TIMES A DAY ;ONGOING: YES
     Route: 048
     Dates: start: 201906
  2. OCREVUS [Suspect]
     Active Substance: OCRELIZUMAB
     Indication: RELAPSING-REMITTING MULTIPLE SCLEROSIS
     Route: 042
     Dates: start: 20180608
  3. LYRICA [Concomitant]
     Active Substance: PREGABALIN
     Indication: FIBROMYALGIA
     Dosage: ONGOING : YES
     Route: 048
     Dates: start: 2018
  4. LYRICA [Concomitant]
     Active Substance: PREGABALIN
     Dosage: ONGOING : NO
     Route: 048
  5. OCREVUS [Suspect]
     Active Substance: OCRELIZUMAB
     Indication: PRIMARY PROGRESSIVE MULTIPLE SCLEROSIS
     Route: 042
  6. TIZANIDINE. [Concomitant]
     Active Substance: TIZANIDINE
     Dosage: 2 TABLETS AT BEDTIME ;ONGOING: YES
     Route: 048
     Dates: start: 201906
  7. VITAMIN D3 [Concomitant]
     Active Substance: CHOLECALCIFEROL
     Route: 048
     Dates: start: 2005
  8. TIZANIDINE. [Concomitant]
     Active Substance: TIZANIDINE
     Dosage: 3 TABLETS OF 2 MG (6 MG TOTAL) TAKES ON AS NEEDED
     Route: 048

REACTIONS (14)
  - Balance disorder [Recovered/Resolved]
  - Muscular weakness [Recovered/Resolved]
  - Musculoskeletal pain [Recovering/Resolving]
  - Contusion [Not Recovered/Not Resolved]
  - Rash [Not Recovered/Not Resolved]
  - Scab [Not Recovered/Not Resolved]
  - Tenderness [Not Recovered/Not Resolved]
  - Skin discolouration [Not Recovered/Not Resolved]
  - Pain in extremity [Recovering/Resolving]
  - Skin ulcer [Not Recovered/Not Resolved]
  - Blindness [Not Recovered/Not Resolved]
  - Urinary tract infection [Recovered/Resolved]
  - Fall [Unknown]
  - Eczema [Not Recovered/Not Resolved]

NARRATIVE: CASE EVENT DATE: 2019
